FAERS Safety Report 13934894 (Version 1)
Quarter: 2017Q3

REPORT INFORMATION
  Report Type: Spontaneous
  Country: SE (occurrence: SE)
  Receive Date: 20170905
  Receipt Date: 20170905
  Transmission Date: 20171127
  Serious: Yes (Hospitalization)
  Sender: FDA-Public Use
  Company Number: SE-CONCORDIA PHARMACEUTICALS INC.-GSH201708-004813

PATIENT
  Age: 51 Year
  Sex: Male

DRUGS (3)
  1. CLONIDINE. [Suspect]
     Active Substance: CLONIDINE
     Dosage: 20 MICROGRAM / ML
  2. DICLOFENAC ORIFARM [Suspect]
     Active Substance: DICLOFENAC
  3. ALVEDON [Suspect]
     Active Substance: ACETAMINOPHEN

REACTIONS (4)
  - Dry mouth [Not Recovered/Not Resolved]
  - Arrhythmia [Not Recovered/Not Resolved]
  - Epistaxis [Not Recovered/Not Resolved]
  - Palpitations [Not Recovered/Not Resolved]
